FAERS Safety Report 20156620 (Version 1)
Quarter: 2021Q4

REPORT INFORMATION
  Report Type: Spontaneous
  Country: IN (occurrence: IN)
  Receive Date: 20211207
  Receipt Date: 20211207
  Transmission Date: 20220303
  Serious: Yes (Death)
  Sender: FDA-Public Use
  Company Number: IN-PFIZER INC-2021777595

PATIENT
  Age: 72 Year
  Sex: Female

DRUGS (9)
  1. DACOMITINIB [Suspect]
     Active Substance: DACOMITINIB
     Indication: Non-small cell lung cancer metastatic
     Dosage: 45 MG, 1X/DAY
     Route: 048
     Dates: start: 20210408
  2. DACOMITINIB [Suspect]
     Active Substance: DACOMITINIB
     Dosage: 30 MG, 1X/DAY
     Route: 048
     Dates: start: 20210616
  3. CEFTAZIDIME [Concomitant]
     Active Substance: CEFTAZIDIME
     Dosage: 500 MG, 2X/DAY FOR 7 DAYS
  4. TELMA-H [Concomitant]
     Dosage: 40/12.5MG ONCE DAILY(IF B.P}130/80MMHG)
  5. MET-XL [Concomitant]
     Dosage: 50 MG, DAILY
  6. RABLET-D [Concomitant]
     Dosage: UNK, DAILY (BEFORE BREAKFAST)
  7. CALPOL T [Concomitant]
     Dosage: SOS
  8. MEGACET [Concomitant]
     Dosage: 160 MG, DAILY
  9. APTIVATE [Concomitant]
     Dosage: 2TSF THRICE DAILY FOR 7 DAYS

REACTIONS (1)
  - Death [Fatal]
